FAERS Safety Report 13384678 (Version 3)
Quarter: 2017Q3

REPORT INFORMATION
  Report Type: Report from Study
  Country: None (occurrence: US)
  Receive Date: 20170329
  Receipt Date: 20170707
  Transmission Date: 20171127
  Serious: Yes (Hospitalization, Other)
  Sender: FDA-Public Use
  Company Number: US-ARALEZ PHARMACEUTICALS R+D INC.-ARA-TP-US-2017-155

PATIENT
  Age: 79 Year
  Sex: Male
  Weight: 62.65 kg

DRUGS (26)
  1. METOPROLOL SUCCINATE. [Suspect]
     Active Substance: METOPROLOL SUCCINATE
     Indication: PRODUCT USED FOR UNKNOWN INDICATION
     Route: 048
     Dates: start: 2014
  2. IPRATROPIUM ALBUTEROL SULFATE AS A NEBULIZER [Concomitant]
     Indication: DYSPNOEA
     Dosage: UP TO 4 TIMES A DAY
     Route: 055
  3. CENTRUM SILVER [Concomitant]
     Active Substance: MINERALS\VITAMINS
     Indication: NUTRITIONAL SUPPLEMENTATION
  4. MUCINEX [Concomitant]
     Active Substance: GUAIFENESIN
     Indication: CHRONIC OBSTRUCTIVE PULMONARY DISEASE
     Route: 048
  5. GLIPIZIDE METFORMIN [Concomitant]
     Indication: DIABETES MELLITUS
  6. COMBIVENT RESPIMAT [Concomitant]
     Active Substance: ALBUTEROL SULFATE\IPRATROPIUM BROMIDE
     Indication: EMPHYSEMA
  7. OXYGEN. [Concomitant]
     Active Substance: OXYGEN
     Indication: OXYGEN THERAPY
  8. METOPROLOL SUCCINATE. [Suspect]
     Active Substance: METOPROLOL SUCCINATE
     Indication: BLOOD PRESSURE MANAGEMENT
     Route: 048
  9. AZITHROMYCIN ANHYDROUS. [Concomitant]
     Active Substance: AZITHROMYCIN ANHYDROUS
     Indication: PULMONARY CONGESTION
     Route: 048
  10. LISINOPRIL. [Suspect]
     Active Substance: LISINOPRIL
     Indication: BLOOD PRESSURE MEASUREMENT
  11. GUAIFENESIN AC COUGH SYRUP [Concomitant]
     Indication: COUGH
  12. BENZONATATE. [Concomitant]
     Active Substance: BENZONATATE
     Indication: COUGH
  13. MUCINEX [Concomitant]
     Active Substance: GUAIFENESIN
     Indication: EMPHYSEMA
  14. ADVAIR HFA [Concomitant]
     Active Substance: FLUTICASONE PROPIONATE\SALMETEROL XINAFOATE
     Indication: CHRONIC OBSTRUCTIVE PULMONARY DISEASE
     Dosage: 500/50 1 PUFF TWICE A DAY
     Route: 055
  15. COMBIVENT RESPIMAT [Concomitant]
     Active Substance: ALBUTEROL SULFATE\IPRATROPIUM BROMIDE
     Indication: CHRONIC OBSTRUCTIVE PULMONARY DISEASE
     Dosage: 1 PUFF UP TO 4 TIMES A DAY
     Route: 055
  16. METOPROLOL SUCCINATE. [Suspect]
     Active Substance: METOPROLOL SUCCINATE
     Route: 048
  17. TUDORZA PRESSAIR [Suspect]
     Active Substance: ACLIDINIUM BROMIDE
     Indication: CHRONIC OBSTRUCTIVE PULMONARY DISEASE
     Route: 055
     Dates: start: 2016
  18. ALBUTEROL SULFATE. [Concomitant]
     Active Substance: ALBUTEROL SULFATE
     Indication: DYSPNOEA
  19. GUAIFENESIN AC COUGH SYRUP [Concomitant]
     Indication: PAIN
     Route: 048
  20. NITROGLYCERIN. [Concomitant]
     Active Substance: NITROGLYCERIN
     Indication: CHEST PAIN
     Route: 048
  21. ALBUTEROL INHALER [Concomitant]
     Active Substance: ALBUTEROL
     Indication: CHRONIC OBSTRUCTIVE PULMONARY DISEASE
  22. ASPIRIN. [Concomitant]
     Active Substance: ASPIRIN
     Indication: CARDIAC DISORDER
  23. ATORVASTATIN [Concomitant]
     Active Substance: ATORVASTATIN
     Indication: BLOOD CHOLESTEROL
  24. FIBER CHOICE [Concomitant]
     Indication: VITAMIN SUPPLEMENTATION
  25. ADVAIR HFA [Concomitant]
     Active Substance: FLUTICASONE PROPIONATE\SALMETEROL XINAFOATE
     Indication: EMPHYSEMA
  26. LISINOPRIL. [Suspect]
     Active Substance: LISINOPRIL
     Indication: CARDIAC DISORDER

REACTIONS (11)
  - Gallbladder operation [Recovered/Resolved]
  - Cough [Recovered/Resolved]
  - Chronic obstructive pulmonary disease [Recovered/Resolved]
  - Chest pain [Recovered/Resolved]
  - Hypercholesterolaemia [Recovered/Resolved]
  - Stent placement [Recovered/Resolved]
  - Emphysema [Recovered/Resolved]
  - Hip arthroplasty [Recovered/Resolved]
  - Diabetes mellitus [Recovered/Resolved]
  - Gastrointestinal haemorrhage [Recovered/Resolved]
  - Hypertension [Recovered/Resolved]

NARRATIVE: CASE EVENT DATE: 2016
